FAERS Safety Report 5285026-0 (Version None)
Quarter: 2007Q2

REPORT INFORMATION
  Report Type: 
  Country: None (occurrence: None)
  Receive Date: 20070403
  Receipt Date: 20070312
  Transmission Date: 20071010
  Serious: Yes (Other)
  Sender: FDA-Public Use
  Company Number: US-SANOFI-SYNTHELABO-A03200702265

PATIENT
  Sex: Male

DRUGS (2)
  1. LEXAPRO [Concomitant]
     Dosage: UNK
     Route: 065
  2. AMBIEN [Suspect]
     Indication: INSOMNIA
     Route: 048
     Dates: start: 20050901, end: 20060320

REACTIONS (5)
  - AMNESIA [None]
  - CONCUSSION [None]
  - FALL [None]
  - FRACTURE [None]
  - HAEMORRHAGE [None]
